FAERS Safety Report 7164582-1 (Version None)
Quarter: 2010Q4

REPORT INFORMATION
  Report Type: 
  Country: None (occurrence: None)
  Receive Date: 20101215
  Receipt Date: 20101207
  Transmission Date: 20110411
  Serious: Yes (Hospitalization, Other)
  Sender: FDA-Public Use
  Company Number: US-PFIZER INC-2003002870

PATIENT
  Sex: Female
  Weight: 122.45 kg

DRUGS (21)
  1. ZOLOFT [Suspect]
     Indication: BIPOLAR II DISORDER
     Dosage: DAILY
     Route: 048
     Dates: start: 19980101
  2. GEODON [Suspect]
     Indication: SCHIZOPHRENIA
     Route: 048
     Dates: end: 20030213
  3. GEODON [Suspect]
     Dosage: 20 MG, 2X/DAY
     Route: 048
  4. RISPERIDONE [Suspect]
     Indication: BIPOLAR II DISORDER
     Dosage: DAILY
     Route: 048
     Dates: start: 19990312, end: 20030127
  5. QUETIAPINE FUMARATE [Suspect]
     Indication: BIPOLAR II DISORDER
     Route: 048
     Dates: start: 19980101, end: 19990111
  6. IBUPROFEN [Suspect]
     Route: 048
  7. DIPHENHYDRAMINE HYDROCHLORIDE [Suspect]
     Indication: ILL-DEFINED DISORDER
     Route: 048
  8. ALLEGRA [Concomitant]
     Route: 048
  9. DESLORATADINE [Concomitant]
     Route: 048
  10. ATENOLOL [Concomitant]
     Dosage: UNK
     Route: 048
  11. HYDROCHLOROTHIAZIDE [Concomitant]
     Dosage: UNK
  12. POTASSIUM [Concomitant]
     Dosage: UNK
  13. PRAVASTATIN [Concomitant]
     Dosage: UNK
  14. PREMPRO [Concomitant]
     Dosage: UNK
  15. ESTRADIOL [Concomitant]
     Dosage: UNK
  16. FOSAMAX [Concomitant]
     Dosage: UNK
  17. MONTELUKAST [Concomitant]
     Dosage: UNK
  18. NAPROSYN [Concomitant]
     Dosage: UNK
  19. ACETYLSALICYLIC ACID [Concomitant]
     Dosage: UNK
  20. NASONEX [Concomitant]
     Dosage: UNK
  21. SITAGLIPTIN [Concomitant]

REACTIONS (16)
  - BLOOD PRESSURE INCREASED [None]
  - BRONCHITIS [None]
  - CHILLS [None]
  - DRY MOUTH [None]
  - FALL [None]
  - FEAR [None]
  - HYPOTENSION [None]
  - INCREASED APPETITE [None]
  - INTENTIONAL OVERDOSE [None]
  - LOSS OF CONSCIOUSNESS [None]
  - MALAISE [None]
  - MENORRHAGIA [None]
  - PNEUMONIA ASPIRATION [None]
  - SOMNOLENCE [None]
  - SUICIDE ATTEMPT [None]
  - WEIGHT INCREASED [None]
